FAERS Safety Report 7050240-0 (Version None)
Quarter: 2010Q4

REPORT INFORMATION
  Report Type: 
  Country: None (occurrence: None)
  Receive Date: 20101018
  Receipt Date: 20101011
  Transmission Date: 20110411
  Serious: Yes (Other)
  Sender: FDA-Public Use
  Company Number: US-BAYER-201021579BCC

PATIENT
  Age: 29 Year
  Sex: Female

DRUGS (1)
  1. FINACEA [Suspect]
     Indication: ROSACEA
     Route: 061
     Dates: start: 20100830, end: 20101010

REACTIONS (2)
  - BURNING SENSATION [None]
  - SCAR [None]
